FAERS Safety Report 7219187-0 (Version None)
Quarter: 2011Q1

REPORT INFORMATION
  Report Type: 
  Country: None (occurrence: None)
  Receive Date: 20110111
  Receipt Date: 20110103
  Transmission Date: 20110831
  Serious: Yes (Hospitalization)
  Sender: FDA-Public Use
  Company Number: US-ASTELLAS-2010US005090

PATIENT

DRUGS (8)
  1. WARFARIN [Concomitant]
     Indication: ANTICOAGULANT THERAPY
     Dosage: 3 MG, UID/QD
     Route: 065
     Dates: start: 20010101
  2. NEPHRO-VITE [Concomitant]
     Indication: RENAL DISORDER
     Dosage: 1 DF, UID/QD
     Route: 065
     Dates: start: 20101101
  3. CALCITRIOL [Concomitant]
     Indication: VITAMIN SUPPLEMENTATION
     Dosage: 0.5 MG, UID/QD
     Route: 065
     Dates: start: 20090101
  4. LISINOPRIL [Concomitant]
     Indication: CARDIAC DISORDER
     Dosage: 20 MG, UID/QD
     Route: 065
     Dates: start: 20080101
  5. DIGOXIN [Concomitant]
     Indication: ARRHYTHMIA PROPHYLAXIS
     Dosage: 1.25 UG, QOD
     Route: 065
     Dates: start: 20080101
  6. PROGRAF [Suspect]
     Indication: LIVER TRANSPLANT
     Dosage: 1 MG, BID
     Route: 065
     Dates: start: 20010324
  7. BACTRIM [Concomitant]
     Indication: ANTIBIOTIC THERAPY
     Dosage: 1 TAB, 3XWEEKLY
     Route: 065
     Dates: start: 20010101
  8. CARVEDILOL [Concomitant]
     Indication: CARDIAC DISORDER
     Dosage: 12.5 MG, BID
     Route: 065
     Dates: start: 20080101

REACTIONS (2)
  - CARDIAC DISORDER [None]
  - GOUT [None]
